FAERS Safety Report 20761972 (Version 2)
Quarter: 2022Q2

REPORT INFORMATION
  Report Type: Report from Study
  Country: US (occurrence: US)
  Receive Date: 20220428
  Receipt Date: 20220528
  Transmission Date: 20220721
  Serious: Yes (Other)
  Sender: FDA-Public Use
  Company Number: US-ABBVIE-22K-163-4332342-00

PATIENT
  Sex: Male

DRUGS (2)
  1. HUMIRA [Suspect]
     Active Substance: ADALIMUMAB
     Indication: Rheumatoid arthritis
     Dosage: CITRATE FREE
     Route: 058
  2. METHOTREXATE [Concomitant]
     Active Substance: METHOTREXATE
     Indication: Product used for unknown indication
     Dates: end: 2022

REACTIONS (12)
  - Neck mass [Unknown]
  - Scab [Unknown]
  - Skin tightness [Unknown]
  - Renal function test abnormal [Unknown]
  - Liver function test increased [Unknown]
  - Skin discolouration [Unknown]
  - Stress [Unknown]
  - Eczema [Unknown]
  - Arthritis [Unknown]
  - Peripheral swelling [Unknown]
  - Pain [Unknown]
  - COVID-19 [Recovering/Resolving]

NARRATIVE: CASE EVENT DATE: 20220101
